FAERS Safety Report 24916588 (Version 1)
Quarter: 2025Q1

REPORT INFORMATION
  Report Type: Spontaneous
  Country: US (occurrence: None)
  Receive Date: 20250131
  Receipt Date: 20250131
  Transmission Date: 20250408
  Serious: Yes (Death)
  Sender: FDA-CTU
  Company Number: None

PATIENT
  Age: 79 Year
  Sex: Female

DRUGS (11)
  1. SPRYCEL [Suspect]
     Active Substance: DASATINIB
     Indication: Chronic myeloid leukaemia
     Dosage: FREQUENCY : DAILY;?
     Route: 048
     Dates: start: 20240701
  2. albutero HFA Inhaler [Concomitant]
  3. Alprazolam 0.25 mg Tablets [Concomitant]
  4. AMLODIPINE [Concomitant]
     Active Substance: AMLODIPINE BESYLATE
  5. Aspirin 81 mg Tablets [Concomitant]
  6. Carvedilol 12.5mg Tablets [Concomitant]
  7. Hydrocodone/Apap 7.5-300 Tablets [Concomitant]
  8. JARDIANCE [Concomitant]
     Active Substance: EMPAGLIFLOZIN
  9. METFORMIN HYDROCHLORIDE [Concomitant]
     Active Substance: METFORMIN HYDROCHLORIDE
  10. Symbicort 160/4.Smcg Inhaler [Concomitant]
  11. Nabumetone 500mg Tablets [Concomitant]

REACTIONS (1)
  - Death [None]
